FAERS Safety Report 10452312 (Version 2)
Quarter: 2014Q3

REPORT INFORMATION
  Report Type: Report from Study
  Country: JP (occurrence: JP)
  Receive Date: 20140915
  Receipt Date: 20140922
  Transmission Date: 20150326
  Serious: No
  Sender: FDA-Public Use
  Company Number: PHHY2009JP072678

PATIENT
  Age: 67 Year
  Sex: Female

DRUGS (3)
  1. AMN107 [Suspect]
     Active Substance: NILOTINIB
     Dosage: UKN, EVERY OTHER DAY
     Dates: start: 20090616
  2. AMN107 [Suspect]
     Active Substance: NILOTINIB
     Indication: CHRONIC MYELOID LEUKAEMIA
     Dosage: 800 MG, DAILY
     Dates: start: 20090616
  3. AMN107 [Suspect]
     Active Substance: NILOTINIB
     Dosage: 200 MG, UNK

REACTIONS (1)
  - Myalgia [Unknown]
